FAERS Safety Report 6839303-X (Version None)
Quarter: 2010Q3

REPORT INFORMATION
  Report Type: 
  Country: None (occurrence: None)
  Receive Date: 20100714
  Receipt Date: 20100630
  Transmission Date: 20110219
  Serious: Yes (Hospitalization, Other)
  Sender: FDA-Public Use
  Company Number: PHHY2010NL42745

PATIENT
  Sex: Male

DRUGS (4)
  1. ZOMETA [Suspect]
     Dosage: 4 MG/5ML
     Route: 042
     Dates: start: 20100406
  2. ZOMETA [Suspect]
     Dosage: UNK
     Dates: start: 20100504
  3. ZOMETA [Suspect]
     Dosage: UNK
     Dates: start: 20100601
  4. ZOMETA [Suspect]
     Dosage: UNK
     Dates: start: 20100629

REACTIONS (3)
  - ACCIDENT [None]
  - HIP FRACTURE [None]
  - HIP SURGERY [None]
